FAERS Safety Report 5708347-3 (Version None)
Quarter: 2008Q2

REPORT INFORMATION
  Report Type: 
  Country: None (occurrence: None)
  Receive Date: 20080417
  Receipt Date: 20080412
  Transmission Date: 20081010
  Serious: Yes (Other)
  Sender: FDA-Public Use
  Company Number: US-ASTRAZENECA-2008UW07676

PATIENT
  Age: 65 Year
  Sex: Female

DRUGS (1)
  1. ARIMIDEX [Suspect]
     Route: 048
     Dates: start: 20030801

REACTIONS (5)
  - FALL [None]
  - GLAUCOMA [None]
  - PAIN [None]
  - SLEEP APNOEA SYNDROME [None]
  - TENDON RUPTURE [None]
